FAERS Safety Report 9838898 (Version 1)
Quarter: 2014Q1

REPORT INFORMATION
  Report Type: Spontaneous
  Country: DE (occurrence: DE)
  Receive Date: 20140123
  Receipt Date: 20140123
  Transmission Date: 20141002
  Serious: Yes (Congenital Anomaly)
  Sender: FDA-Public Use
  Company Number: DE-TEVA-456756GER

PATIENT
  Age: 1 Day
  Sex: Male
  Weight: 3.67 kg

DRUGS (2)
  1. LORATADIN [Suspect]
     Route: 064
  2. SALBUTAMOL [Concomitant]
     Route: 064

REACTIONS (1)
  - Hypospadias [Recovered/Resolved with Sequelae]
